FAERS Safety Report 21837111 (Version 2)
Quarter: 2023Q1

REPORT INFORMATION
  Report Type: Spontaneous
  Country: US (occurrence: US)
  Receive Date: 20230109
  Receipt Date: 20230215
  Transmission Date: 20230417
  Serious: No
  Sender: FDA-Public Use
  Company Number: US-SA-SAC20230105000740

PATIENT
  Sex: Male

DRUGS (18)
  1. DUPIXENT [Suspect]
     Active Substance: DUPILUMAB
     Indication: Asthma
     Dosage: 300 MG, QOW
     Route: 058
     Dates: start: 2021
  2. DUPIXENT [Suspect]
     Active Substance: DUPILUMAB
     Indication: Hypogammaglobulinaemia
  3. XEMBIFY [Concomitant]
     Active Substance: HUMAN IMMUNOGLOBULIN G
  4. ACETAMINOPHEN [Concomitant]
     Active Substance: ACETAMINOPHEN
  5. LIDOCAINE [Concomitant]
     Active Substance: LIDOCAINE
  6. EPINEPHRINE [Concomitant]
     Active Substance: EPINEPHRINE
  7. DIPHENHYDRAMINE [Concomitant]
     Active Substance: DIPHENHYDRAMINE
     Dosage: 75 MG
  8. PLAVIX [Concomitant]
     Active Substance: CLOPIDOGREL BISULFATE
  9. DILTIAZEM [Concomitant]
     Active Substance: DILTIAZEM
     Indication: Hypertension
     Dosage: 240 MG
  10. DILTIAZEM [Concomitant]
     Active Substance: DILTIAZEM
     Indication: Myocardial infarction
  11. ALBUTEROL SULFATE [Concomitant]
     Active Substance: ALBUTEROL SULFATE
     Indication: Asthma
     Dosage: 1 MG
  12. XANAX [Concomitant]
     Active Substance: ALPRAZOLAM
     Indication: Depression
     Dosage: 10 MG
  13. AMBIEN [Concomitant]
     Active Substance: ZOLPIDEM TARTRATE
     Dosage: 1 MG
  14. SYMBICORT [Concomitant]
     Active Substance: BUDESONIDE\FORMOTEROL FUMARATE DIHYDRATE
     Indication: Asthma
     Dosage: 120 MG
  15. PROZAC [Concomitant]
     Active Substance: FLUOXETINE HYDROCHLORIDE
  16. LIPITOR [Concomitant]
     Active Substance: ATORVASTATIN CALCIUM
  17. VITAMIN D3 [Concomitant]
     Active Substance: CHOLECALCIFEROL
  18. DILTIAZEM HYDROCHLORIDE [Concomitant]
     Active Substance: DILTIAZEM HYDROCHLORIDE

REACTIONS (3)
  - Nasopharyngitis [Unknown]
  - Malaise [Unknown]
  - Product use in unapproved indication [Unknown]
